FAERS Safety Report 8261992-6 (Version None)
Quarter: 2012Q2

REPORT INFORMATION
  Report Type: 
  Country: None (occurrence: None)
  Receive Date: 20120405
  Receipt Date: 20120330
  Transmission Date: 20120825
  Serious: Yes (Other)
  Sender: FDA-Public Use
  Company Number: ES-PFIZER INC-2012074843

PATIENT
  Sex: Male
  Weight: 2.175 kg

DRUGS (1)
  1. CYTOTEC [Suspect]
     Dosage: 4000 UG, UNK
     Route: 064

REACTIONS (3)
  - MATERNAL EXPOSURE TIMING UNSPECIFIED [None]
  - PREMATURE BABY [None]
  - OVERDOSE [None]
